FAERS Safety Report 9524650 (Version 1)
Quarter: 2013Q3

REPORT INFORMATION
  Report Type: Spontaneous
  Country: FR (occurrence: FR)
  Receive Date: 20130916
  Receipt Date: 20130916
  Transmission Date: 20140515
  Serious: Yes (Hospitalization)
  Sender: FDA-Public Use
  Company Number: FR-PFIZER INC-2013261924

PATIENT
  Age: 86 Year
  Sex: Female

DRUGS (7)
  1. LYRICA [Suspect]
     Dosage: 50 MG, 2X/DAY
     Route: 048
  2. LAROXYL [Suspect]
     Indication: BACK PAIN
     Dosage: 25 MG, 1X/DAY
     Route: 048
     Dates: start: 20130731, end: 20130807
  3. OXYCONTIN [Concomitant]
  4. OXYNORM [Concomitant]
  5. TRANSIPEG [Concomitant]
  6. KARDEGIC [Concomitant]
  7. LEVOTHYROX [Concomitant]

REACTIONS (5)
  - Myoclonus [Recovered/Resolved]
  - Fall [Recovered/Resolved]
  - Hallucination [Unknown]
  - Disorientation [Unknown]
  - Abnormal behaviour [Unknown]
